FAERS Safety Report 9474691 (Version 2)
Quarter: 2013Q3

REPORT INFORMATION
  Report Type: Spontaneous
  Country: IT (occurrence: IT)
  Receive Date: 20130823
  Receipt Date: 20130909
  Transmission Date: 20140515
  Serious: Yes (Other)
  Sender: FDA-Public Use
  Company Number: IT-B.I. PHARMACEUTICALS,INC./RIDGEFIELD-2013-BI-24755IT

PATIENT
  Sex: 0

DRUGS (1)
  1. PRADAXA [Suspect]

REACTIONS (2)
  - Anticoagulation drug level above therapeutic [Unknown]
  - Coagulopathy [Unknown]
